FAERS Safety Report 5235192-8 (Version None)
Quarter: 2007Q1

REPORT INFORMATION
  Report Type: 
  Country: None (occurrence: None)
  Receive Date: 20070212
  Receipt Date: 20070130
  Transmission Date: 20070707
  Serious: Yes (Life-Threatening, Hospitalization, Other)
  Sender: FDA-Public Use
  Company Number: DE-JNJFOC-20061106455

PATIENT
  Sex: Female

DRUGS (10)
  1. REMICADE [Suspect]
     Route: 042
  2. REMICADE [Suspect]
     Route: 042
  3. REMICADE [Suspect]
     Indication: RHEUMATOID ARTHRITIS
     Route: 042
  4. ARAVA [Suspect]
     Indication: DRUG USE FOR UNKNOWN INDICATION
     Route: 065
  5. PRENI H [Concomitant]
     Route: 065
  6. EUTHROX [Concomitant]
     Route: 065
  7. ATENOLOL [Concomitant]
     Route: 048
  8. CALCIMAG D3 [Concomitant]
     Route: 065
  9. NEXIUM [Concomitant]
     Route: 048
  10. HYDROXYCHLOROQUIN [Concomitant]
     Route: 065

REACTIONS (5)
  - AMYLOIDOSIS [None]
  - CEREBRAL HAEMORRHAGE [None]
  - HYPERTENSIVE CRISIS [None]
  - PARAESTHESIA [None]
  - TRANSAMINASES INCREASED [None]
